FAERS Safety Report 5233447-4 (Version None)
Quarter: 2007Q1

REPORT INFORMATION
  Report Type: 
  Country: None (occurrence: None)
  Receive Date: 20070206
  Receipt Date: 20070126
  Transmission Date: 20070707
  Serious: Yes (Other)
  Sender: FDA-Public Use
  Company Number: GXKR2007GB01233

PATIENT
  Age: 66 Year
  Sex: Male
  Weight: 95.4 kg

DRUGS (3)
  1. METFORMIN (NGX) (METFORMIN) UNKNOWN [Suspect]
     Indication: DIABETES MELLITUS
     Dosage: 500 MG, BID, ORAL
     Route: 048
     Dates: start: 20061221, end: 20061228
  2. ASPIRIN [Concomitant]
  3. IRBESARTAN [Concomitant]

REACTIONS (2)
  - EPISTAXIS [None]
  - HAEMORRHAGE [None]
